FAERS Safety Report 11254773 (Version 1)
Quarter: 2015Q3

REPORT INFORMATION
  Report Type: Spontaneous
  Country: US (occurrence: None)
  Receive Date: 20150708
  Receipt Date: 20150708
  Transmission Date: 20151125
  Serious: Yes (Life-Threatening, Hospitalization, Disabling)
  Sender: FDA-Public Use
  Company Number: None

PATIENT
  Age: 61 Year
  Sex: Male
  Weight: 108.86 kg

DRUGS (8)
  1. NASAL SALINE SOLUTION [Concomitant]
  2. DIAMOX SEQUELS [Suspect]
     Active Substance: ACETAZOLAMIDE
     Indication: CATARACT OPERATION
     Dates: start: 20150331
  3. LISINOPRIL. [Concomitant]
     Active Substance: LISINOPRIL
  4. BABY ASPIRINE [Concomitant]
  5. FLUTICASONE PROP [Concomitant]
  6. HYDROCHLOROTHIAZIDE. [Concomitant]
     Active Substance: HYDROCHLOROTHIAZIDE
  7. BUPROPION HCL XL [Concomitant]
     Active Substance: BUPROPION HYDROCHLORIDE
  8. CITALOPRAM [Concomitant]
     Active Substance: CITALOPRAM HYDROBROMIDE

REACTIONS (3)
  - Metabolic acidosis [None]
  - Idiosyncratic drug reaction [None]
  - Respiratory failure [None]

NARRATIVE: CASE EVENT DATE: 20150331
